FAERS Safety Report 16572052 (Version 7)
Quarter: 2021Q3

REPORT INFORMATION
  Report Type: Spontaneous
  Country: US (occurrence: US)
  Receive Date: 20190715
  Receipt Date: 20210729
  Transmission Date: 20211014
  Serious: Yes (Hospitalization, Other)
  Sender: FDA-Public Use
  Company Number: US-PFIZER INC-2019137919

PATIENT
  Age: 31 Year
  Sex: Female

DRUGS (2)
  1. LYRICA [Suspect]
     Active Substance: PREGABALIN
     Dosage: 150 MG, 2X/DAY (FOR 5 DAYS)
     Route: 048
  2. LYRICA [Suspect]
     Active Substance: PREGABALIN
     Indication: PAIN
     Dosage: 150 MG, 2X/DAY (ONE TABLET (TAB) BY MOUTH (PO) EVERY (Q) 12 HOURS)
     Route: 048

REACTIONS (5)
  - Feeling abnormal [Unknown]
  - Drug dependence [Unknown]
  - COVID-19 [Unknown]
  - Mental impairment [Unknown]
  - Weight increased [Recovered/Resolved]
